FAERS Safety Report 8414175-0 (Version None)
Quarter: 2012Q2

REPORT INFORMATION
  Report Type: 
  Country: None (occurrence: None)
  Receive Date: 20120605
  Receipt Date: 20120523
  Transmission Date: 20120825
  Serious: No
  Sender: FDA-Public Use
  Company Number: US-ASTRAZENECA-2012SE26330

PATIENT
  Age: 38 Year
  Sex: Female
  Weight: 46.7 kg

DRUGS (2)
  1. PULMICORT FLEXHALER [Suspect]
     Dosage: 180 MCG ONE PUFF DAILY
     Route: 055
  2. ZOPINEX [Concomitant]
     Dosage: AS NEEDED

REACTIONS (5)
  - PALPITATIONS [None]
  - HEADACHE [None]
  - MALAISE [None]
  - THROAT IRRITATION [None]
  - OFF LABEL USE [None]
